FAERS Safety Report 5125428-6 (Version None)
Quarter: 2006Q3

REPORT INFORMATION
  Report Type: 
  Country: None (occurrence: None)
  Receive Date: 20060822
  Receipt Date: 20060724
  Transmission Date: 20061208
  Serious: No
  Sender: FDA-Public Use
  Company Number: PHEH2006US09497

PATIENT
  Sex: Female

DRUGS (3)
  1. ENABLEX [Suspect]
  2. MUCINEX [Suspect]
  3. ANTIBIOTICS(NO INGREDIENTS(SUBSTANCES) [Suspect]

REACTIONS (3)
  - ABDOMINAL PAIN UPPER [None]
  - DRUG INTERACTION [None]
  - STOMACH DISCOMFORT [None]
